FAERS Safety Report 10247822 (Version 2)
Quarter: 2014Q3

REPORT INFORMATION
  Report Type: Spontaneous
  Country: DE (occurrence: DE)
  Receive Date: 20140619
  Receipt Date: 20140714
  Transmission Date: 20150326
  Serious: Yes (Other)
  Sender: FDA-Public Use
  Company Number: DE-BRISTOL-MYERS SQUIBB COMPANY-21020292

PATIENT
  Age: 62 Year
  Sex: Male
  Weight: 75 kg

DRUGS (6)
  1. ERBITUX [Suspect]
     Active Substance: CETUXIMAB
     Indication: HEAD AND NECK CANCER METASTATIC
     Dosage: 1.ALONG WITH CARBOPLATIN?20DEC2013-14MAY2014(INT):144 DAYS?REINTRODUCED ON 11JUN2014
     Route: 042
     Dates: start: 201312
  2. RANITIDINE [Concomitant]
     Active Substance: RANITIDINE\RANITIDINE HYDROCHLORIDE
  3. CARBOPLATIN. [Concomitant]
     Active Substance: CARBOPLATIN
     Indication: HEAD AND NECK CANCER
     Dates: start: 201312
  4. DEXAMETHASONE. [Concomitant]
     Active Substance: DEXAMETHASONE
     Route: 042
     Dates: start: 20131220, end: 20140611
  5. CARBOPLATIN. [Concomitant]
     Active Substance: CARBOPLATIN
     Indication: METASTASES TO LUNG
     Dates: start: 201312
  6. CLEMASTINE [Concomitant]
     Active Substance: CLEMASTINE

REACTIONS (3)
  - Gamma-glutamyltransferase increased [Not Recovered/Not Resolved]
  - Cholestasis [Not Recovered/Not Resolved]
  - Blood alkaline phosphatase increased [Not Recovered/Not Resolved]

NARRATIVE: CASE EVENT DATE: 20140423
